FAERS Safety Report 8296089-2 (Version None)
Quarter: 2012Q2

REPORT INFORMATION
  Report Type: 
  Country: None (occurrence: None)
  Receive Date: 20120418
  Receipt Date: 20120407
  Transmission Date: 20120825
  Serious: Yes (Hospitalization)
  Sender: FDA-Public Use
  Company Number: US-GLAXOSMITHKLINE-A0939908A

PATIENT
  Age: 70 Year
  Sex: Female

DRUGS (5)
  1. SUPPLEMENT [Suspect]
     Indication: ARTHRALGIA
  2. UNKNOWN MEDICATION [Concomitant]
  3. COREG CR [Suspect]
     Indication: HYPERTENSION
     Dosage: 20MG PER DAY
     Route: 048
     Dates: start: 20100101
  4. PROTON PUMP INHIBITOR [Suspect]
     Indication: PRODUCT USED FOR UNKNOWN INDICATION
  5. LISINOPRIL [Concomitant]

REACTIONS (12)
  - PRURITUS [None]
  - HEART RATE DECREASED [None]
  - BLOOD PRESSURE INADEQUATELY CONTROLLED [None]
  - FATIGUE [None]
  - RASH [None]
  - BLOOD PRESSURE INCREASED [None]
  - HEADACHE [None]
  - BLOOD PRESSURE FLUCTUATION [None]
  - VISUAL IMPAIRMENT [None]
  - TREATMENT NONCOMPLIANCE [None]
  - DRUG INEFFECTIVE [None]
  - NECK PAIN [None]
